FAERS Safety Report 8336956-4 (Version None)
Quarter: 2012Q2

REPORT INFORMATION
  Report Type: 
  Country: None (occurrence: None)
  Receive Date: 20120504
  Receipt Date: 20120427
  Transmission Date: 20120825
  Serious: Yes (Hospitalization, Other)
  Sender: FDA-Public Use
  Company Number: PH-B.I. PHARMACEUTICALS,INC./RIDGEFIELD-2012-CS-00551RP

PATIENT
  Age: 63 Year
  Sex: Male

DRUGS (3)
  1. ACE INHIBITOR [Concomitant]
     Indication: HYPERTENSION
  2. AMIODARONE HCL [Concomitant]
     Indication: ATRIAL FIBRILLATION
  3. PRADAXA [Suspect]
     Indication: CEREBROVASCULAR ACCIDENT PROPHYLAXIS
     Dosage: 300 MG
     Route: 048
     Dates: start: 20120306, end: 20120417

REACTIONS (2)
  - THROMBOTIC STROKE [None]
  - HAEMORRHAGIC TRANSFORMATION STROKE [None]
